FAERS Safety Report 17105501 (Version 1)
Quarter: 2019Q4

REPORT INFORMATION
  Report Type: Spontaneous
  Country: IT (occurrence: IT)
  Receive Date: 20191203
  Receipt Date: 20191203
  Transmission Date: 20200122
  Serious: Yes (Other)
  Sender: FDA-Public Use
  Company Number: NVSC2019IT053565

PATIENT
  Age: 66 Year
  Sex: Female

DRUGS (4)
  1. OXALIPLATIN. [Suspect]
     Active Substance: OXALIPLATIN
     Indication: METASTASES TO LIVER
     Dosage: 220 MG, CYCLIC
     Route: 042
     Dates: start: 20180809
  2. OXALIPLATIN. [Suspect]
     Active Substance: OXALIPLATIN
     Dosage: 220 MG, CYCLIC
     Route: 042
     Dates: start: 20180829
  3. VECTIBIX [Suspect]
     Active Substance: PANITUMUMAB
     Dosage: 400 MG, CYCLIC
     Route: 042
     Dates: start: 20181129
  4. VECTIBIX [Suspect]
     Active Substance: PANITUMUMAB
     Indication: METASTASES TO LIVER
     Dosage: 400 MG, CYCLIC
     Route: 042
     Dates: start: 20180809

REACTIONS (3)
  - Dyspnoea [Recovering/Resolving]
  - Skin fissures [Recovering/Resolving]
  - Neuropathy peripheral [Recovering/Resolving]

NARRATIVE: CASE EVENT DATE: 20181018
